FAERS Safety Report 24625333 (Version 2)
Quarter: 2025Q3

REPORT INFORMATION
  Report Type: Spontaneous
  Country: EU (occurrence: EU)
  Receive Date: 20241115
  Receipt Date: 20250802
  Transmission Date: 20251020
  Serious: Yes (Other)
  Sender: ALEXION PHARMACEUTICALS
  Company Number: EU-SANOFI-02274307

PATIENT
  Age: 1 Year
  Sex: Female

DRUGS (1)
  1. NIRSEVIMAB [Suspect]
     Active Substance: NIRSEVIMAB
     Indication: Product used for unknown indication
     Dates: start: 202310, end: 202310

REACTIONS (2)
  - Bronchiolitis [Unknown]
  - Off label use [Unknown]

NARRATIVE: CASE EVENT DATE: 20240101
